FAERS Safety Report 10472890 (Version 1)
Quarter: 2014Q3

REPORT INFORMATION
  Report Type: Spontaneous
  Country: SZ (occurrence: None)
  Receive Date: 20140922
  Receipt Date: 20140922
  Transmission Date: 20150326
  Serious: Yes (Other)
  Sender: FDA-Public Use
  Company Number: 20140605

PATIENT
  Age: 45 Year
  Sex: Female
  Weight: 75 kg

DRUGS (1)
  1. FERINJECT [Suspect]
     Active Substance: FERRIC CARBOXYMALTOSE
     Indication: IRON DEFICIENCY
     Route: 041
     Dates: start: 20140711, end: 20140711

REACTIONS (6)
  - Influenza like illness [None]
  - Pyrexia [None]
  - Myalgia [None]
  - Malaise [None]
  - Headache [None]
  - Chills [None]

NARRATIVE: CASE EVENT DATE: 20140712
